FAERS Safety Report 9096351 (Version 1)
Quarter: 2013Q1

REPORT INFORMATION
  Report Type: Spontaneous
  Country: BE (occurrence: BE)
  Receive Date: 20130207
  Receipt Date: 20130207
  Transmission Date: 20140127
  Serious: Yes (Other)
  Sender: FDA-Public Use
  Company Number: BE-009507513-1302BEL001912

PATIENT
  Sex: Male

DRUGS (2)
  1. NORFLOXACIN [Suspect]
     Dosage: 400 MG, QD
     Route: 048
  2. BURINEX [Concomitant]
     Dosage: UNK, QD
     Route: 048

REACTIONS (3)
  - Hypoacusis [Unknown]
  - Ataxia [Unknown]
  - Tinnitus [Unknown]
